FAERS Safety Report 13357416 (Version 1)
Quarter: 2017Q1

REPORT INFORMATION
  Report Type: Spontaneous
  Country: US (occurrence: US)
  Receive Date: 20170322
  Receipt Date: 20170322
  Transmission Date: 20170429
  Serious: No
  Sender: FDA-Public Use
  Company Number: US-AMGEN-USASP2017039947

PATIENT
  Age: 57 Year
  Sex: Female

DRUGS (1)
  1. ENBREL [Suspect]
     Active Substance: ETANERCEPT
     Indication: RHEUMATOID ARTHRITIS
     Dosage: 50 MG, QWK ON MONDAYS
     Route: 065
     Dates: start: 2016

REACTIONS (3)
  - Arthralgia [Unknown]
  - Underdose [Unknown]
  - Infection [Unknown]

NARRATIVE: CASE EVENT DATE: 20170313
